FAERS Safety Report 16154359 (Version 1)
Quarter: 2019Q2

REPORT INFORMATION
  Report Type: Spontaneous
  Country: US (occurrence: US)
  Receive Date: 20190403
  Receipt Date: 20190403
  Transmission Date: 20190711
  Serious: No
  Sender: FDA-Public Use
  Company Number: US-ELI_LILLY_AND_COMPANY-US201904001339

PATIENT
  Sex: Female

DRUGS (4)
  1. TRULICITY [Suspect]
     Active Substance: DULAGLUTIDE
     Indication: WEIGHT DECREASED
     Dosage: 1.5 MG, WEEKLY (1/W)
     Route: 058
     Dates: start: 20190325
  2. DILANTIN PHENYTOIN [Concomitant]
     Indication: SEIZURE
     Dosage: 100 MG, EACH EVENING
  3. TRULICITY [Suspect]
     Active Substance: DULAGLUTIDE
     Indication: DECREASED APPETITE
     Dosage: 1.5 MG, WEEKLY (1/W)
     Route: 058
     Dates: start: 20190311
  4. HYDROCHLOROTHIAZIDE. [Concomitant]
     Active Substance: HYDROCHLOROTHIAZIDE
     Indication: PRODUCT USED FOR UNKNOWN INDICATION
     Dosage: 12.5 MG, QID

REACTIONS (6)
  - Rash pruritic [Recovering/Resolving]
  - Tremor [Not Recovered/Not Resolved]
  - Product prescribing error [Recovering/Resolving]
  - Dizziness [Not Recovered/Not Resolved]
  - Chills [Not Recovered/Not Resolved]
  - Lip swelling [Recovered/Resolved]

NARRATIVE: CASE EVENT DATE: 201903
